FAERS Safety Report 6142521-X (Version None)
Quarter: 2009Q2

REPORT INFORMATION
  Report Type: 
  Country: None (occurrence: None)
  Receive Date: 20090403
  Receipt Date: 20090330
  Transmission Date: 20091009
  Serious: Yes (Death, Other)
  Sender: FDA-Public Use
  Company Number: US-PFIZER INC-2009191557

PATIENT
  Sex: Female

DRUGS (1)
  1. CELEBREX [Suspect]
     Indication: RHEUMATOID ARTHRITIS

REACTIONS (5)
  - DEATH [None]
  - DYSPHAGIA [None]
  - FALL [None]
  - LIMB OPERATION [None]
  - RIB FRACTURE [None]
